FAERS Safety Report 10744460 (Version 1)
Quarter: 2015Q1

REPORT INFORMATION
  Report Type: Spontaneous
  Country: US (occurrence: None)
  Receive Date: 20150126
  Receipt Date: 20150126
  Transmission Date: 20150721
  Serious: Yes (Other)
  Sender: FDA-Public Use
  Company Number: 2015-US-000740

PATIENT
  Age: 70 Year
  Sex: Female

DRUGS (1)
  1. XYREM [Suspect]
     Active Substance: SODIUM OXYBATE
     Indication: NARCOLEPSY
     Route: 048
     Dates: start: 200706, end: 2007

REACTIONS (2)
  - Cardiac pacemaker insertion [None]
  - Foot operation [None]

NARRATIVE: CASE EVENT DATE: 201412
